FAERS Safety Report 15957427 (Version 2)
Quarter: 2019Q2

REPORT INFORMATION
  Report Type: Spontaneous
  Country: US (occurrence: US)
  Receive Date: 20190213
  Receipt Date: 20190402
  Transmission Date: 20190711
  Serious: No
  Sender: FDA-Public Use
  Company Number: PHEH2019US006397

PATIENT
  Sex: Female

DRUGS (1)
  1. PATANASE [Suspect]
     Active Substance: OLOPATADINE HYDROCHLORIDE
     Indication: SINUSITIS
     Route: 065

REACTIONS (3)
  - Sinonasal obstruction [Unknown]
  - Nasal discomfort [Unknown]
  - Drug ineffective [Unknown]
